FAERS Safety Report 20637927 (Version 1)
Quarter: 2022Q1

REPORT INFORMATION
  Report Type: Other
  Country: CA (occurrence: CA)
  Receive Date: 20220325
  Receipt Date: 20220325
  Transmission Date: 20220423
  Serious: Yes (Other)
  Sender: FDA-Public Use
  Company Number: CA-ASTELLAS-2022US011272

PATIENT
  Age: 60 Year
  Sex: Male

DRUGS (14)
  1. TACROLIMUS [Suspect]
     Active Substance: TACROLIMUS
     Indication: Myoclonus
     Dosage: UNK UNK, UNKNOWN FREQ.
     Route: 065
  2. TACROLIMUS [Suspect]
     Active Substance: TACROLIMUS
     Indication: Coeliac disease
  3. HUMAN IMMUNOGLOBULIN G [Suspect]
     Active Substance: HUMAN IMMUNOGLOBULIN G
     Indication: Myoclonus
     Dosage: UNK UNK, UNKNOWN FREQ.
     Route: 042
  4. HUMAN IMMUNOGLOBULIN G [Suspect]
     Active Substance: HUMAN IMMUNOGLOBULIN G
     Indication: Coeliac disease
     Dosage: UNK UNK, UNKNOWN FREQ.
     Route: 065
  5. METHYLPREDNISOLONE SODIUM SUCCINATE [Suspect]
     Active Substance: METHYLPREDNISOLONE SODIUM SUCCINATE
     Indication: Myoclonus
     Dosage: UNK UNK, UNKNOWN FREQ.
     Route: 065
  6. METHYLPREDNISOLONE SODIUM SUCCINATE [Suspect]
     Active Substance: METHYLPREDNISOLONE SODIUM SUCCINATE
     Indication: Coeliac disease
  7. PREDNISONE [Suspect]
     Active Substance: PREDNISONE
     Indication: Myoclonus
     Dosage: UNK UNK, UNKNOWN FREQ.
     Route: 065
  8. PREDNISONE [Suspect]
     Active Substance: PREDNISONE
     Indication: Coeliac disease
  9. CLONAZEPAM [Concomitant]
     Active Substance: CLONAZEPAM
     Indication: Myoclonus
     Dosage: UNK UNK, UNKNOWN FREQ.
     Route: 065
  10. CLONAZEPAM [Concomitant]
     Active Substance: CLONAZEPAM
     Indication: Coeliac disease
  11. LEVETIRACETAM [Concomitant]
     Active Substance: LEVETIRACETAM
     Indication: Myoclonus
     Dosage: UNK UNK, UNKNOWN FREQ.
     Route: 065
  12. LEVETIRACETAM [Concomitant]
     Active Substance: LEVETIRACETAM
     Indication: Coeliac disease
  13. VALPROIC ACID [Concomitant]
     Active Substance: VALPROIC ACID
     Indication: Myoclonus
     Dosage: UNK UNK, UNKNOWN FREQ.
     Route: 065
  14. VALPROIC ACID [Concomitant]
     Active Substance: VALPROIC ACID
     Indication: Coeliac disease

REACTIONS (2)
  - Drug ineffective [Unknown]
  - Off label use [Unknown]
